FAERS Safety Report 24563833 (Version 5)
Quarter: 2025Q4

REPORT INFORMATION
  Report Type: Report from Study
  Country: CA (occurrence: None)
  Receive Date: 20241030
  Receipt Date: 20251120
  Transmission Date: 20260117
  Serious: Yes (Other)
  Sender: UCB
  Company Number: CA-UCBSA-2024055879

PATIENT
  Age: 56 Year

DRUGS (7)
  1. BIMEKIZUMAB [Suspect]
     Active Substance: BIMEKIZUMAB
     Indication: Psoriatic arthropathy
     Dosage: 160 MILLIGRAM, EV 4 WEEKS
  2. BIMEKIZUMAB [Suspect]
     Active Substance: BIMEKIZUMAB
     Dosage: 160 MILLIGRAM, EV 4 WEEKS
  3. METHOTREXATE SODIUM [Concomitant]
     Active Substance: METHOTREXATE SODIUM
     Indication: Product used for unknown indication
     Dosage: 20 MILLIGRAM, WEEKLY (QW), SUNDAY EVENING
  4. CELEBREX [Concomitant]
     Active Substance: CELECOXIB
     Indication: Product used for unknown indication
     Dosage: 100 MILLIGRAM, 2X/DAY (BID)
  5. TYLENOL [Concomitant]
     Active Substance: ACETAMINOPHEN
     Indication: Product used for unknown indication
     Dosage: ARTHRITIS 2 TABS HS AND 1 TAB IN AM (650MG PER TAB),
  6. TRAZODONE [Concomitant]
     Active Substance: TRAZODONE HYDROCHLORIDE
     Indication: Product used for unknown indication
     Dosage: 50 MILLIGRAM, AT HS FOR SLEEP
  7. VITAMINS NOS [Concomitant]
     Active Substance: VITAMINS
     Indication: Product used for unknown indication

REACTIONS (2)
  - Atrial fibrillation [Recovered/Resolved]
  - Therapy interrupted [Unknown]
